FAERS Safety Report 18034886 (Version 1)
Quarter: 2020Q3

REPORT INFORMATION
  Report Type: Spontaneous
  Country: US (occurrence: US)
  Receive Date: 20200715
  Receipt Date: 20200715
  Transmission Date: 20201103
  Serious: No
  Sender: FDA-Public Use
  Company Number: None

PATIENT

DRUGS (3)
  1. HEPARIN SOD SOLUTION 1,000 UNITS/500ML HEPARIN SODIUM [Suspect]
     Active Substance: HEPARIN SODIUM
     Route: 042
  2. LIDOCAINE HYDROCHLORIDE LIDOCAINE HYDROCHLORIDE [Suspect]
     Active Substance: LIDOCAINE HYDROCHLORIDE
     Route: 042
  3. HYPERTONIC SALINE HYPERTONIC SALINE [Suspect]
     Active Substance: SODIUM CHLORIDE
     Route: 042

REACTIONS (2)
  - Product packaging confusion [None]
  - Product dispensing error [None]
